FAERS Safety Report 18963442 (Version 1)
Quarter: 2021Q1

REPORT INFORMATION
  Report Type: Spontaneous
  Country: AU (occurrence: AU)
  Receive Date: 20210303
  Receipt Date: 20210303
  Transmission Date: 20210420
  Serious: Yes (Other)
  Sender: FDA-Public Use
  Company Number: AU-MYLANLABS-2021M1013429

PATIENT
  Age: 38 Year
  Sex: Female

DRUGS (9)
  1. METFORMIN [Suspect]
     Active Substance: METFORMIN HYDROCHLORIDE
     Indication: TYPE 2 DIABETES MELLITUS
     Dosage: UNK
     Route: 065
  2. INSULIN [Suspect]
     Active Substance: INSULIN NOS
     Dosage: AT 35 WEEKS OF GESTATION, HER DAILY INSULIN REQUIREMENT HAD REACHED 1455 UNITS
     Route: 065
  3. INSULIN ASPART [Suspect]
     Active Substance: INSULIN ASPART
     Dosage: INSULIN REQUIREMENT ESCALATED RISING TO 400 UNITS PER DAY BY END OF FIRST TRIMESTER
     Route: 065
  4. INSULIN [Suspect]
     Active Substance: INSULIN NOS
     Indication: TYPE 2 DIABETES MELLITUS
     Dosage: UNK, U?500
     Route: 065
  5. ISOPHANE INSULIN [Suspect]
     Active Substance: INSULIN NOS
     Dosage: INSULIN REQUIREMENT ESCALATED RISING TO 400 UNITS PER DAY BY END OF FIRST TRIMESTER
     Route: 065
  6. ISOPHANE INSULIN [Suspect]
     Active Substance: INSULIN NOS
     Indication: TYPE 2 DIABETES MELLITUS
     Dosage: UNK UNK, BID
     Route: 065
  7. INSULIN GLARGINE [Suspect]
     Active Substance: INSULIN GLARGINE
     Indication: TYPE 2 DIABETES MELLITUS
     Dosage: IV INFUSION OF INSULIN AT A RATE OF 90 UNITS PER HOUR TO ACHIEVE NORMOGLYCAEMIA
     Route: 042
  8. INSULIN GLARGINE [Suspect]
     Active Substance: INSULIN GLARGINE
     Dosage: AT 35 WEEKS OF GESTATION, HER DAILY INSULIN REQUIREMENT HAD REACHED 1455 UNITS
     Route: 042
  9. INSULIN ASPART [Suspect]
     Active Substance: INSULIN ASPART
     Indication: TYPE 2 DIABETES MELLITUS
     Dosage: PRE?MEAL INSULIN ASPART AND TWICE DAILY
     Route: 065

REACTIONS (2)
  - Drug ineffective [Unknown]
  - Maternal exposure during pregnancy [Unknown]
